FAERS Safety Report 4452373-1 (Version None)
Quarter: 2004Q3

REPORT INFORMATION
  Report Type: 
  Country: None (occurrence: None)
  Receive Date: 20040915
  Receipt Date: 20040901
  Transmission Date: 20050211
  Serious: Yes (Death, Hospitalization)
  Sender: FDA-Public Use
  Company Number: 208588

PATIENT
  Age: 90 Year
  Sex: Male

DRUGS (5)
  1. METALYSE(TENECTEPLASE) PWDR + SOLVENT,INJECTION SOLN, 50MG [Suspect]
     Indication: DRUG USE FOR UNKNOWN INDICATION
     Dosage: 40 MG, SINGLE, IV BOLUS
     Route: 040
  2. ASPIRIN [Concomitant]
  3. VASOACTIVE DRUGS [Concomitant]
  4. HEPARIN [Concomitant]
  5. INSULINA (INSULIN) [Concomitant]

REACTIONS (4)
  - CARDIOGENIC SHOCK [None]
  - DEHYDRATION [None]
  - DIABETES MELLITUS [None]
  - RENAL FAILURE [None]
